FAERS Safety Report 17686171 (Version 2)
Quarter: 2020Q2

REPORT INFORMATION
  Report Type: Spontaneous
  Country: US (occurrence: US)
  Receive Date: 20200420
  Receipt Date: 20200626
  Transmission Date: 20200714
  Serious: Yes (Other)
  Sender: FDA-Public Use
  Company Number: US-BAYER-2020-061637

PATIENT
  Age: 30 Year
  Sex: Female

DRUGS (2)
  1. MIRENA [Suspect]
     Active Substance: LEVONORGESTREL
     Indication: MENORRHAGIA
  2. MIRENA [Suspect]
     Active Substance: LEVONORGESTREL
     Indication: CONTRACEPTION
     Dosage: 20 ?G PER DAY CONTINUOUSLY
     Route: 015
     Dates: start: 200807, end: 20200608

REACTIONS (13)
  - Peripheral swelling [Recovered/Resolved]
  - Nausea [Recovered/Resolved]
  - Joint swelling [Recovered/Resolved]
  - Abdominal pain upper [Recovered/Resolved]
  - Amenorrhoea [Recovered/Resolved]
  - Muscle spasms [Recovered/Resolved]
  - Vaginal discharge [Recovered/Resolved]
  - Cerebrovascular accident [Recovered/Resolved]
  - Cerebrospinal fluid leakage [Recovered/Resolved]
  - Dizziness [Recovered/Resolved]
  - Genital haemorrhage [Recovered/Resolved]
  - Device use issue [None]
  - Neuralgia [Recovered/Resolved]

NARRATIVE: CASE EVENT DATE: 200808
